FAERS Safety Report 9718370 (Version 1)
Quarter: 2013Q4

REPORT INFORMATION
  Report Type: Spontaneous
  Country: US (occurrence: US)
  Receive Date: 20131125
  Receipt Date: 20131125
  Transmission Date: 20140711
  Serious: No
  Sender: FDA-Public Use
  Company Number: US-VIVUS-2013V1000296

PATIENT
  Age: 60 Year
  Sex: Female
  Weight: 103.51 kg

DRUGS (3)
  1. QSYMIA 3.75MG/23MG [Suspect]
     Indication: OBESITY
     Route: 048
     Dates: start: 20130407
  2. SYNTHYROID [Concomitant]
     Indication: PRODUCT USED FOR UNKNOWN INDICATION
  3. UNKNOWN HYPERLIPIDEMIA MEDICATION [Concomitant]
     Indication: HYPERLIPIDAEMIA

REACTIONS (5)
  - Vomiting [Unknown]
  - Cold sweat [Not Recovered/Not Resolved]
  - Retching [Not Recovered/Not Resolved]
  - Dizziness [Not Recovered/Not Resolved]
  - Nausea [Unknown]
